FAERS Safety Report 8474297-5 (Version None)
Quarter: 2012Q2

REPORT INFORMATION
  Report Type: 
  Country: None (occurrence: None)
  Receive Date: 20120628
  Receipt Date: 20120620
  Transmission Date: 20120825
  Serious: Yes (Hospitalization, Other)
  Sender: FDA-Public Use
  Company Number: US-BAYER-2012-054969

PATIENT
  Age: 81 Year
  Sex: Male

DRUGS (1)
  1. NEXAVAR [Suspect]
     Indication: HEPATIC NEOPLASM MALIGNANT
     Dosage: 400 MG, BID
     Dates: start: 20120521, end: 20120606

REACTIONS (9)
  - HEPATIC NEOPLASM MALIGNANT [None]
  - DEHYDRATION [None]
  - FATIGUE [None]
  - CYSTITIS [None]
  - ASTHENIA [None]
  - WHITE BLOOD CELL COUNT INCREASED [None]
  - DECREASED APPETITE [None]
  - WEIGHT DECREASED [None]
  - CONVULSION [None]
